FAERS Safety Report 7054870-1 (Version None)
Quarter: 2010Q4

REPORT INFORMATION
  Report Type: 
  Country: None (occurrence: None)
  Receive Date: 20101021
  Receipt Date: 20101012
  Transmission Date: 20110411
  Serious: No
  Sender: FDA-Public Use
  Company Number: US-BIOGENIDEC-2010BI025391

PATIENT
  Age: 37 Year
  Sex: Male

DRUGS (1)
  1. TYSABRI [Suspect]
     Indication: MULTIPLE SCLEROSIS
     Route: 042
     Dates: start: 20100415

REACTIONS (8)
  - AMNESIA [None]
  - BLINDNESS [None]
  - BODY TEMPERATURE FLUCTUATION [None]
  - EYE IRRITATION [None]
  - INCREASED APPETITE [None]
  - IRRITABILITY [None]
  - SOMNOLENCE [None]
  - WEIGHT INCREASED [None]
